FAERS Safety Report 5801790-3 (Version None)
Quarter: 2008Q3

REPORT INFORMATION
  Report Type: 
  Country: None (occurrence: None)
  Receive Date: 20080702
  Receipt Date: 20080702
  Transmission Date: 20090109
  Serious: Yes (Hospitalization)
  Sender: FDA-Public Use
  Company Number: None

PATIENT
  Age: 55 Year
  Sex: Male
  Weight: 75 kg

DRUGS (1)
  1. PAROXETINE HCL [Suspect]
     Dosage: 20 MG AT BEDTIME PO
     Route: 048
     Dates: start: 20070604, end: 20070615

REACTIONS (1)
  - JAUNDICE [None]
